FAERS Safety Report 5700043-1 (Version None)
Quarter: 2008Q2

REPORT INFORMATION
  Report Type: 
  Country: None (occurrence: None)
  Receive Date: 20080410
  Receipt Date: 20080402
  Transmission Date: 20081010
  Serious: Yes (Death)
  Sender: FDA-Public Use
  Company Number: US-ROCHE-552159

PATIENT
  Age: 84 Year
  Sex: Female
  Weight: 34 kg

DRUGS (1)
  1. BONIVA [Suspect]
     Indication: BONE DISORDER
     Dosage: RECEIVED THE MEDICATION ON THE FIRST OF EVERY MONTH
     Route: 065
     Dates: end: 20071101

REACTIONS (2)
  - CARDIAC ARREST [None]
  - CEREBROVASCULAR ACCIDENT [None]
